FAERS Safety Report 5744435-3 (Version None)
Quarter: 2008Q2

REPORT INFORMATION
  Report Type: 
  Country: None (occurrence: None)
  Receive Date: 20080520
  Receipt Date: 20080509
  Transmission Date: 20081010
  Serious: Yes (Death, Other)
  Sender: FDA-Public Use
  Company Number: JP-ROCHE-557649

PATIENT
  Sex: Male

DRUGS (3)
  1. ROCEPHIN [Suspect]
     Indication: PNEUMONIA ASPIRATION
     Dosage: ROUTE: INTRAVENOUS (NOT OTHERWISE SPECIFIED)
     Route: 042
     Dates: start: 20080318, end: 20080324
  2. FUROSEMIDE [Concomitant]
     Dosage: ROUTE: INTRAVENOUS (NOS)
     Route: 042
     Dates: start: 20080304, end: 20080407
  3. ZANTAC [Concomitant]
     Dosage: ROUTE: INTRAVENOUS (NOS)
     Route: 042
     Dates: start: 20080304, end: 20080407

REACTIONS (2)
  - HEPATIC FUNCTION ABNORMAL [None]
  - RESPIRATORY DISORDER [None]
